FAERS Safety Report 6376240-1 (Version None)
Quarter: 2009Q3

REPORT INFORMATION
  Report Type: 
  Country: None (occurrence: None)
  Receive Date: 20090925
  Receipt Date: 20090918
  Transmission Date: 20100115
  Serious: Yes (Hospitalization)
  Sender: FDA-Public Use
  Company Number: US-BIOGENIDEC-2009BI025021

PATIENT
  Age: 58 Year
  Sex: Male
  Weight: 79 kg

DRUGS (7)
  1. TYSABRI [Suspect]
     Indication: MULTIPLE SCLEROSIS
     Route: 042
     Dates: start: 20080208
  2. VALSARTAN [Concomitant]
     Indication: HYPERTENSION
     Route: 048
     Dates: start: 20080101
  3. RISEDRONATE SODIUM [Concomitant]
     Indication: OSTEOPENIA
     Route: 048
     Dates: start: 20080101
  4. MULTI-VITAMIN [Concomitant]
     Indication: MEDICAL DIET
     Route: 048
     Dates: start: 20080101
  5. CALCIUM WITH VITAMIN D [Concomitant]
     Indication: OSTEOPENIA
     Route: 048
     Dates: start: 20080101
  6. FISH OIL [Concomitant]
     Indication: MEDICAL DIET
     Route: 048
     Dates: start: 20080101
  7. METAMUCIL [Concomitant]
     Indication: MEDICAL DIET
     Route: 048
     Dates: start: 20080101

REACTIONS (1)
  - CHOLECYSTITIS ACUTE [None]
